FAERS Safety Report 17792432 (Version 1)
Quarter: 2020Q2

REPORT INFORMATION
  Report Type: Spontaneous
  Country: NO (occurrence: NO)
  Receive Date: 20200515
  Receipt Date: 20200515
  Transmission Date: 20200714
  Serious: Yes (Disabling, Other)
  Sender: FDA-Public Use
  Company Number: NO-TEVA-2020-NO-1234534

PATIENT
  Age: 41 Year
  Sex: Female
  Weight: 80 kg

DRUGS (1)
  1. METHOTREXATE. [Suspect]
     Active Substance: METHOTREXATE
     Indication: ARTHRITIS
     Dosage: TAKEN EVERY DAY EXCEPT FOR ONE.
     Dates: start: 2010, end: 2011

REACTIONS (11)
  - Memory impairment [Unknown]
  - Fatigue [Unknown]
  - Palpitations [Recovered/Resolved with Sequelae]
  - Somnolence [Unknown]
  - Dyspnoea [Recovered/Resolved with Sequelae]
  - Diarrhoea [Recovered/Resolved with Sequelae]
  - General physical health deterioration [Recovered/Resolved with Sequelae]
  - Cognitive disorder [Recovered/Resolved with Sequelae]
  - Dizziness [Recovered/Resolved with Sequelae]
  - Tremor [Unknown]
  - Aphasia [Unknown]
